FAERS Safety Report 14801004 (Version 1)
Quarter: 2018Q2

REPORT INFORMATION
  Report Type: Spontaneous
  Country: US (occurrence: US)
  Receive Date: 20180424
  Receipt Date: 20180424
  Transmission Date: 20180711
  Serious: No
  Sender: FDA-Public Use
  Company Number: US-AMNEAL PHARMACEUTICALS-2018AMN00184

PATIENT
  Weight: 68.27 kg

DRUGS (2)
  1. SILDENAFIL. [Suspect]
     Active Substance: SILDENAFIL
     Indication: MALE SEXUAL DYSFUNCTION
     Dosage: 1 TABLETS, AS NEEDED
     Route: 048
  2. ^BLOOD PRESSURE PILLS^ [Concomitant]
     Route: 065

REACTIONS (1)
  - Drug ineffective [Not Recovered/Not Resolved]
